FAERS Safety Report 18001466 (Version 1)
Quarter: 2020Q3

REPORT INFORMATION
  Report Type: Spontaneous
  Country: GB (occurrence: GB)
  Receive Date: 20200709
  Receipt Date: 20200709
  Transmission Date: 20201103
  Serious: Yes (Other)
  Sender: FDA-Public Use
  Company Number: ALC2020GB005287

PATIENT

DRUGS (2)
  1. BETAMETHASONE. [Concomitant]
     Active Substance: BETAMETHASONE
     Indication: PRODUCT USED FOR UNKNOWN INDICATION
     Route: 065
  2. VISCOTEARS [Suspect]
     Active Substance: CARBOMER
     Indication: DRY EYE
     Dosage: 1 DRP (1/12 MILLILITRE)
     Route: 047
     Dates: start: 20200619, end: 20200621

REACTIONS (6)
  - Paraesthesia [Recovered/Resolved]
  - Urticaria [Recovering/Resolving]
  - Lip swelling [Recovered/Resolved]
  - Swollen tongue [Recovered/Resolved]
  - Hypersensitivity [Recovering/Resolving]
  - Pharyngeal swelling [Recovered/Resolved]

NARRATIVE: CASE EVENT DATE: 20200619
